FAERS Safety Report 8902759 (Version 1)
Quarter: 2012Q4

REPORT INFORMATION
  Report Type: 
  Country: US (occurrence: US)
  Receive Date: 20121112
  Receipt Date: 20121112
  Transmission Date: 20130627
  Serious: No
  Sender: FDA-Public Use
  Company Number: US-PFIZER INC-2012281496

PATIENT
  Age: 95 Year
  Sex: Female
  Weight: 61.2 kg

DRUGS (2)
  1. LYRICA [Suspect]
     Indication: POST HERPETIC NEURALGIA
     Dosage: 75 mg in morning and 150 mg at night
     Dates: start: 2007
  2. ATENOLOL [Concomitant]
     Indication: BLOOD PRESSURE HIGH
     Dosage: 25 mg, daily

REACTIONS (1)
  - Alopecia [Not Recovered/Not Resolved]
